FAERS Safety Report 7636080-X (Version None)
Quarter: 2011Q3

REPORT INFORMATION
  Report Type: 
  Country: None (occurrence: None)
  Receive Date: 20110726
  Receipt Date: 20110715
  Transmission Date: 20111222
  Serious: Yes (Other)
  Sender: FDA-Public Use
  Company Number: US-MYLANLABS-2011S1014807

PATIENT
  Age: 88 Year
  Sex: Female
  Weight: 72.58 kg

DRUGS (7)
  1. PHENYTOIN SODIUM CAP [Suspect]
     Indication: CONVULSION
     Route: 048
  2. LIPITOR [Concomitant]
     Indication: BLOOD CHOLESTEROL ABNORMAL
     Route: 048
  3. DILANTIN [Suspect]
     Indication: CONVULSION
     Route: 048
     Dates: start: 19920101
  4. LOVAZA [Concomitant]
     Indication: EYE DISORDER
     Route: 048
  5. FUROSEMIDE [Concomitant]
     Indication: DIURETIC THERAPY
     Route: 048
  6. DILANTIN [Suspect]
     Route: 048
  7. COUMADIN [Concomitant]
     Route: 048

REACTIONS (5)
  - CARDIAC FAILURE CONGESTIVE [None]
  - MALAISE [None]
  - CARDIOMEGALY [None]
  - LUNG DISORDER [None]
  - BRONCHITIS [None]
